FAERS Safety Report 21634008 (Version 2)
Quarter: 2022Q4

REPORT INFORMATION
  Report Type: Report from Study
  Country: US (occurrence: US)
  Receive Date: 20221123
  Receipt Date: 20221230
  Transmission Date: 20230112
  Serious: No
  Sender: FDA-Public Use
  Company Number: US-ABBVIE-4198281

PATIENT
  Age: 58 Year
  Sex: Female
  Weight: 99.79 kg

DRUGS (6)
  1. HUMIRA [Suspect]
     Active Substance: ADALIMUMAB
     Indication: Rheumatoid arthritis
     Dosage: CITRATE FREE
     Route: 058
  2. HUMIRA [Suspect]
     Active Substance: ADALIMUMAB
     Dosage: CITRATE FREE?FREQUENCY TEXT: INITIAL DOSE
     Route: 058
     Dates: start: 20221107
  3. SULFASALAZINE [Concomitant]
     Active Substance: SULFASALAZINE
     Indication: Product used for unknown indication
  4. SKELAXIN [Concomitant]
     Active Substance: METAXALONE
     Indication: Product used for unknown indication
  5. CYTOMEL [Concomitant]
     Active Substance: LIOTHYRONINE SODIUM
     Indication: Product used for unknown indication
  6. PROGESTERONE [Concomitant]
     Active Substance: PROGESTERONE
     Indication: Product used for unknown indication

REACTIONS (5)
  - Oral discomfort [Recovered/Resolved]
  - Chest discomfort [Recovered/Resolved]
  - Wrong technique in product usage process [Unknown]
  - Intentional product misuse [Not Recovered/Not Resolved]
  - Dizziness [Recovered/Resolved]

NARRATIVE: CASE EVENT DATE: 20221107
